FAERS Safety Report 5931143-9 (Version None)
Quarter: 2008Q4

REPORT INFORMATION
  Report Type: 
  Country: None (occurrence: None)
  Receive Date: 20081027
  Receipt Date: 20081020
  Transmission Date: 20090506
  Serious: Yes (Other)
  Sender: FDA-Public Use
  Company Number: PHHY2008FR24611

PATIENT
  Age: 65 Year
  Sex: Male

DRUGS (3)
  1. LIORESAL [Suspect]
     Dosage: 10 MG, TID
     Route: 048
  2. ASPEGIC 325 [Concomitant]
  3. DOLIPRANE [Concomitant]

REACTIONS (4)
  - CONFUSIONAL STATE [None]
  - DELIRIUM [None]
  - FACE OEDEMA [None]
  - SPEECH DISORDER [None]
